FAERS Safety Report 7602593-X (Version None)
Quarter: 2011Q3

REPORT INFORMATION
  Report Type: 
  Country: None (occurrence: None)
  Receive Date: 20110711
  Receipt Date: 20110711
  Transmission Date: 20111222
  Serious: Yes (Hospitalization)
  Sender: FDA-Public Use
  Company Number: None

PATIENT
  Age: 74 Year
  Sex: Female

DRUGS (15)
  1. NORCO [Concomitant]
  2. ELAVIL [Concomitant]
  3. FERROUS GLUCONATE [Concomitant]
  4. LASIX [Concomitant]
  5. K-TAB [Concomitant]
  6. LEVOTHROID [Concomitant]
  7. NITROSTAT [Concomitant]
  8. PRILOSEC [Concomitant]
  9. COLACE [Concomitant]
  10. PROAIR HFA [Concomitant]
  11. LETARIS 5MG GILEAD [Suspect]
     Indication: PULMONARY ARTERIAL HYPERTENSION
     Dosage: 5MG QD ORALLY
     Route: 048
     Dates: start: 20110610, end: 20110616
  12. LETARIS 5MG GILEAD [Suspect]
     Indication: SCLERODERMA
     Dosage: 5MG QD ORALLY
     Route: 048
     Dates: start: 20110610, end: 20110616
  13. ZOCOR [Concomitant]
  14. QVAR 40 [Concomitant]
  15. ASCORBIC ACID [Concomitant]

REACTIONS (4)
  - WEIGHT INCREASED [None]
  - DYSPNOEA [None]
  - CONDITION AGGRAVATED [None]
  - OEDEMA PERIPHERAL [None]
